FAERS Safety Report 5899065-X (Version None)
Quarter: 2008Q3

REPORT INFORMATION
  Report Type: 
  Country: None (occurrence: None)
  Receive Date: 20080925
  Receipt Date: 20080917
  Transmission Date: 20090109
  Serious: Yes (Hospitalization)
  Sender: FDA-Public Use
  Company Number: JP-PFIZER INC-2008078876

PATIENT
  Age: 71 Year
  Sex: Female
  Weight: 54.5 kg

DRUGS (18)
  1. AZULFIDINE [Suspect]
     Indication: RHEUMATOID ARTHRITIS
     Route: 048
     Dates: start: 20080624, end: 20080722
  2. OPALMON [Concomitant]
  3. CELECOXIB [Concomitant]
  4. MUCOSTA [Concomitant]
  5. LORCAM [Concomitant]
  6. AMARYL [Concomitant]
  7. BASEN [Concomitant]
  8. SIGMART [Concomitant]
  9. ANPLAG [Concomitant]
  10. ASPIRIN [Concomitant]
  11. AMLODIPINE BESYLATE [Concomitant]
  12. BLOPRESS [Concomitant]
  13. ALLOPURINOL [Concomitant]
  14. LANSOPRAZOLE [Concomitant]
  15. ACTOS [Concomitant]
  16. LIVALO [Concomitant]
  17. EBRANTIL [Concomitant]
  18. NEO-MEDROL [Concomitant]

REACTIONS (3)
  - HEPATIC FUNCTION ABNORMAL [None]
  - JAUNDICE [None]
  - LYMPHOCYTE STIMULATION TEST POSITIVE [None]
